FAERS Safety Report 9407836 (Version 5)
Quarter: 2014Q3

REPORT INFORMATION
  Report Type: Spontaneous
  Country: US (occurrence: None)
  Receive Date: 20130423
  Receipt Date: 20140701
  Transmission Date: 20150326
  Serious: Yes (Other)
  Sender: FDA-Public Use
  Company Number: ADR-2012-00899

PATIENT
  Sex: Female

DRUGS (2)
  1. BACLOFEN. [Suspect]
     Active Substance: BACLOFEN
     Indication: MUSCLE SPASTICITY
  2. ORAL MEDICATIONS [Suspect]
     Active Substance: UNSPECIFIED INGREDIENT

REACTIONS (36)
  - Memory impairment [None]
  - Dehydration [None]
  - Frustration [None]
  - Hypotonia [None]
  - Withdrawal syndrome [None]
  - Discomfort [None]
  - Retching [None]
  - Prescribed overdose [None]
  - Coma [None]
  - Nausea [None]
  - Tinnitus [None]
  - Insomnia [None]
  - Depression [None]
  - Vision blurred [None]
  - Decreased appetite [None]
  - Quality of life decreased [None]
  - Menopause [None]
  - Marital problem [None]
  - Fatigue [None]
  - Adverse drug reaction [None]
  - Palpitations [None]
  - Feeling abnormal [None]
  - Bedridden [None]
  - Malaise [None]
  - Cognitive disorder [None]
  - Mental status changes [None]
  - Tachycardia [None]
  - Therapeutic response decreased [None]
  - Feeling jittery [None]
  - Headache [None]
  - Aphagia [None]
  - Disease recurrence [None]
  - Post procedural complication [None]
  - Muscle tightness [None]
  - Asthenia [None]
  - Muscle spasticity [None]
